FAERS Safety Report 9476123 (Version 1)
Quarter: 2013Q3

REPORT INFORMATION
  Report Type: Report from Study
  Country: BR (occurrence: BR)
  Receive Date: 20130826
  Receipt Date: 20130826
  Transmission Date: 20140515
  Serious: Yes (Other)
  Sender: FDA-Public Use
  Company Number: PHHY2013BR092197

PATIENT
  Sex: Female

DRUGS (3)
  1. DIOVAN [Suspect]
  2. DIOVAN AMLO FIX [Suspect]
     Indication: BLOOD CHOLESTEROL
     Dosage: 1 DF, (160 MG VALS/ 5 MG AMLO) BEFORE LUNCH
  3. DIOVAN AMLO FIX [Suspect]
     Indication: OFF LABEL USE

REACTIONS (1)
  - Dementia Alzheimer^s type [Not Recovered/Not Resolved]
